FAERS Safety Report 17351142 (Version 1)
Quarter: 2020Q1

REPORT INFORMATION
  Report Type: Spontaneous
  Country: TR (occurrence: TR)
  Receive Date: 20200130
  Receipt Date: 20200130
  Transmission Date: 20200409
  Serious: Yes (Death, Other)
  Sender: FDA-Public Use
  Company Number: TR-AMGEN-TURSP2020012922

PATIENT

DRUGS (4)
  1. PEGFILGRASTIM [Suspect]
     Active Substance: PEGFILGRASTIM
     Indication: PROPHYLAXIS
     Dosage: UNK
     Route: 065
  2. PANITUMUMAB [Suspect]
     Active Substance: PANITUMUMAB
     Indication: NEOPLASM MALIGNANT
     Dosage: UNK
     Route: 065
  3. LENOGRASTIM [Suspect]
     Active Substance: LENOGRASTIM
     Indication: PROPHYLAXIS
     Dosage: UNK
     Route: 065
  4. FILGRASTIM [Suspect]
     Active Substance: FILGRASTIM
     Indication: PROPHYLAXIS
     Dosage: UNK
     Route: 065

REACTIONS (4)
  - Musculoskeletal pain [Unknown]
  - Eastern Cooperative Oncology Group performance status worsened [Unknown]
  - Death [Fatal]
  - Intentional product misuse [Unknown]
